FAERS Safety Report 5293941-7 (Version None)
Quarter: 2007Q2

REPORT INFORMATION
  Report Type: 
  Country: None (occurrence: None)
  Receive Date: 20070411
  Receipt Date: 20070409
  Transmission Date: 20071010
  Serious: Yes (Other)
  Sender: FDA-Public Use
  Company Number: US-PFIZER INC-2007028015

PATIENT
  Age: 62 Year
  Sex: Female

DRUGS (1)
  1. DETROL [Suspect]

REACTIONS (2)
  - DRUG INEFFECTIVE [None]
  - STENT PLACEMENT [None]
